FAERS Safety Report 18925146 (Version 1)
Quarter: 2021Q1

REPORT INFORMATION
  Report Type: Spontaneous
  Country: IN (occurrence: IN)
  Receive Date: 20210222
  Receipt Date: 20210222
  Transmission Date: 20210420
  Serious: Yes (Death)
  Sender: FDA-Public Use
  Company Number: IN-PFIZER INC-2020412619

PATIENT
  Age: 58 Year
  Sex: Female

DRUGS (2)
  1. DACOPLICE [Suspect]
     Active Substance: DACOMITINIB
     Dosage: 15 MG, 1X/DAY FOR 2 WEEKS
     Route: 048
     Dates: start: 20201022, end: 20201104
  2. DACOPLICE [Suspect]
     Active Substance: DACOMITINIB
     Dosage: 30 MG, 1X/DAY FOR 2 WEEKS
     Route: 048
     Dates: start: 20201105, end: 20201118

REACTIONS (1)
  - Death [Fatal]
